FAERS Safety Report 5960326-7 (Version None)
Quarter: 2008Q4

REPORT INFORMATION
  Report Type: 
  Country: None (occurrence: None)
  Receive Date: 20081118
  Receipt Date: 20081106
  Transmission Date: 20090506
  Serious: Yes (Life-Threatening)
  Sender: FDA-Public Use
  Company Number: 004568

PATIENT
  Age: 81 Year
  Sex: Male
  Weight: 46 kg

DRUGS (5)
  1. PLETAL [Suspect]
     Indication: CEREBRAL INFARCTION
     Dosage: 100 MG, BID ORAL
     Route: 048
     Dates: start: 20080805, end: 20080905
  2. RYTHMODAN (DISOPYRAMIDE) UNKNOWN, 50 MG [Suspect]
     Indication: ARRHYTHMIA
     Dosage: 50 MG, BID
     Dates: start: 20080819, end: 20080905
  3. ADALAT L (NIFEDIPINE) TABLET [Concomitant]
  4. GASTER (FAMOTIDINE) UNKNOWN [Concomitant]
  5. ENALAPRIL MALEATE [Concomitant]

REACTIONS (4)
  - ATRIOVENTRICULAR BLOCK SECOND DEGREE [None]
  - CARDIAC FAILURE [None]
  - OEDEMA PERIPHERAL [None]
  - TACHYCARDIA [None]
